FAERS Safety Report 12544407 (Version 5)
Quarter: 2016Q4

REPORT INFORMATION
  Report Type: Spontaneous
  Country: US (occurrence: US)
  Receive Date: 20160711
  Receipt Date: 20161024
  Transmission Date: 20170207
  Serious: Yes (Other)
  Sender: FDA-Public Use
  Company Number: US-PFIZER INC-2016284080

PATIENT
  Age: 38 Year
  Sex: Female
  Weight: 58 kg

DRUGS (7)
  1. IBRANCE [Suspect]
     Active Substance: PALBOCICLIB
     Dosage: 125 MG, CYCLIC (DAYS 1-21 Q28 DAYS)
     Route: 048
     Dates: start: 20160523
  2. IBRANCE [Suspect]
     Active Substance: PALBOCICLIB
     Dosage: 125 MG, CYCLIC (DAYS 1-21 Q 28 DAYS)
     Route: 048
     Dates: start: 20160523
  3. IBRANCE [Suspect]
     Active Substance: PALBOCICLIB
     Dosage: 125 MG, CYCLIC (DAYS 1-21 Q28 DAYS)
     Route: 048
  4. LETROZOLE. [Concomitant]
     Active Substance: LETROZOLE
     Dosage: UNK
  5. IBRANCE [Suspect]
     Active Substance: PALBOCICLIB
     Dosage: 125 MG, CYCLIC (D1-D21 Q28D)
     Route: 048
  6. IBRANCE [Suspect]
     Active Substance: PALBOCICLIB
     Indication: BREAST CANCER METASTATIC
     Dosage: 125 MG, CYCLIC (DAY 1-21 Q28 DAYS)
     Route: 048
     Dates: start: 20160523
  7. TAMOXIFEN [Concomitant]
     Active Substance: TAMOXIFEN
     Dosage: UNK

REACTIONS (14)
  - Neutropenia [Unknown]
  - Tooth infection [Unknown]
  - Pain in extremity [Unknown]
  - Nausea [Unknown]
  - Vomiting [Unknown]
  - Bone pain [Unknown]
  - Arthralgia [Unknown]
  - Neoplasm progression [Unknown]
  - Menopausal symptoms [Unknown]
  - Drug dose omission [Unknown]
  - Psychiatric symptom [Unknown]
  - Fatigue [Unknown]
  - White blood cell count decreased [Unknown]
  - Hot flush [Unknown]
